FAERS Safety Report 8582171-9 (Version None)
Quarter: 2012Q3

REPORT INFORMATION
  Report Type: 
  Country: None (occurrence: None)
  Receive Date: 20120809
  Receipt Date: 20120803
  Transmission Date: 20120928
  Serious: Yes (Other)
  Sender: FDA-Public Use
  Company Number: PHHY2012CA065370

PATIENT
  Sex: Male

DRUGS (1)
  1. RITALIN-SR [Suspect]
     Dosage: 20 MG, UNK
     Dates: start: 20120716, end: 20120731

REACTIONS (9)
  - AMNESIA [None]
  - INSOMNIA [None]
  - DEPRESSED MOOD [None]
  - FEELING ABNORMAL [None]
  - PERSONALITY CHANGE [None]
  - DRUG INEFFECTIVE [None]
  - EUPHORIC MOOD [None]
  - ABNORMAL BEHAVIOUR [None]
  - DISTURBANCE IN ATTENTION [None]
